FAERS Safety Report 8153355-9 (Version None)
Quarter: 2012Q1

REPORT INFORMATION
  Report Type: 
  Country: None (occurrence: None)
  Receive Date: 20120215
  Receipt Date: 20120131
  Transmission Date: 20120608
  Serious: Yes (Hospitalization, Other)
  Sender: FDA-Public Use
  Company Number: JPI-P-012499

PATIENT
  Age: 65 Year
  Sex: Male
  Weight: 88.905 kg

DRUGS (17)
  1. PRAVASTATIN SODIUM [Concomitant]
  2. BENAZEPRIL HYDROCHLORIDE [Concomitant]
  3. BUEMTANIDE [Concomitant]
  4. PANTOPRAZOLE [Concomitant]
  5. TRAMADOL HCL [Concomitant]
  6. XYREM [Suspect]
     Indication: CATAPLEXY
     Dosage: SEE IMAGE
     Route: 048
     Dates: end: 20040210
  7. XYREM [Suspect]
     Indication: CATAPLEXY
     Dosage: SEE IMAGE
     Route: 048
     Dates: start: 20030721
  8. XYREM [Suspect]
     Indication: CATAPLEXY
     Dosage: SEE IMAGE
     Route: 048
     Dates: start: 20040211
  9. CELECOXIB [Concomitant]
  10. ATENOLOL AND CHLORTHALIDONE [Concomitant]
  11. FISH OIL [Concomitant]
  12. FLUOXETINE HCL [Concomitant]
  13. ACETYLSALICYLIC ACID SRT [Concomitant]
  14. DEXTROAMPHETAMINE [Concomitant]
  15. CARVEDILOL [Concomitant]
  16. PRAMIPEXOLE DIHYCHLLORIDE [Concomitant]
  17. CENTRUM [Concomitant]

REACTIONS (3)
  - MYOCARDIAL INFARCTION [None]
  - PRODUCT TASTE ABNORMAL [None]
  - INITIAL INSOMNIA [None]
